FAERS Safety Report 9701721 (Version 1)
Quarter: 2013Q4

REPORT INFORMATION
  Report Type: Spontaneous
  Country: US (occurrence: US)
  Receive Date: 20131119
  Receipt Date: 20131119
  Transmission Date: 20140711
  Serious: Yes (Other)
  Sender: FDA-Public Use
  Company Number: -SAVIENT-2012S1000110

PATIENT
  Age: 42 Year
  Sex: Male
  Weight: 215.46 kg

DRUGS (6)
  1. KRYSTEXXA [Suspect]
     Indication: GOUT
     Route: 042
     Dates: start: 20121102, end: 20121102
  2. KRYSTEXXA [Suspect]
     Indication: GOUT
     Route: 042
     Dates: start: 20121019, end: 20121019
  3. NAPROXEN [Concomitant]
     Indication: PAIN
  4. BENADRYL /01563701/ [Concomitant]
     Indication: ALLERGY PROPHYLAXIS
  5. SOLU-MEDROL [Concomitant]
     Indication: ALLERGY PROPHYLAXIS
  6. TYLENOL PM [Concomitant]
     Indication: ALLERGY PROPHYLAXIS

REACTIONS (1)
  - Infusion related reaction [Recovered/Resolved]
